FAERS Safety Report 5488920-0 (Version None)
Quarter: 2007Q4

REPORT INFORMATION
  Report Type: 
  Country: None (occurrence: None)
  Receive Date: 20071016
  Receipt Date: 20071008
  Transmission Date: 20080405
  Serious: Yes (Death, Hospitalization)
  Sender: FDA-Public Use
  Company Number: 2007SP017628

PATIENT
  Age: 73 Year
  Sex: Male

DRUGS (2)
  1. TEMODAL [Suspect]
     Indication: METASTASES TO CENTRAL NERVOUS SYSTEM
     Dosage: 130 MG; PO
     Route: 048
     Dates: start: 20070815
  2. TEMODAL [Suspect]
     Indication: NON-SMALL CELL LUNG CANCER
     Dosage: 130 MG; PO
     Route: 048
     Dates: start: 20070815

REACTIONS (1)
  - GENERAL PHYSICAL HEALTH DETERIORATION [None]
